FAERS Safety Report 20310803 (Version 4)
Quarter: 2025Q1

REPORT INFORMATION
  Report Type: Report from Study
  Country: US (occurrence: US)
  Receive Date: 20220107
  Receipt Date: 20250328
  Transmission Date: 20250409
  Serious: Yes (Hospitalization, Other)
  Sender: TAKEDA
  Company Number: US-TAKEDA-US202021903

PATIENT
  Sex: Female

DRUGS (4)
  1. HUMAN IMMUNOGLOBULIN G [Suspect]
     Active Substance: HUMAN IMMUNOGLOBULIN G
     Indication: Primary immunodeficiency syndrome
     Dosage: 35 GRAM, Q2WEEKS
  2. GAMMAGARD S/D [Suspect]
     Active Substance: HUMAN IMMUNOGLOBULIN G
     Indication: Primary immunodeficiency syndrome
     Dosage: 15 GRAM, 1/WEEK
  3. GAMMAGARD S/D [Suspect]
     Active Substance: HUMAN IMMUNOGLOBULIN G
     Indication: Blood immunoglobulin A decreased
  4. GAMMAGARD S/D [Suspect]
     Active Substance: HUMAN IMMUNOGLOBULIN G
     Indication: Immunodeficiency common variable

REACTIONS (14)
  - COVID-19 pneumonia [Unknown]
  - Streptobacillus infection [Unknown]
  - Device delivery system issue [Unknown]
  - Infection [Unknown]
  - Vein disorder [Unknown]
  - Complication associated with device [Unknown]
  - Fall [Unknown]
  - Product dose omission issue [Unknown]
  - Contusion [Unknown]
  - Infusion site bruising [Unknown]
  - Arthralgia [Unknown]
  - Headache [Unknown]
  - Product use issue [Unknown]
  - Insurance issue [Unknown]
